FAERS Safety Report 5954297-7 (Version None)
Quarter: 2008Q4

REPORT INFORMATION
  Report Type: 
  Country: None (occurrence: None)
  Receive Date: 20081117
  Receipt Date: 20080606
  Transmission Date: 20090506
  Serious: No
  Sender: FDA-Public Use
  Company Number: US-AMGEN-KDL254251

PATIENT
  Sex: Female
  Weight: 81.7 kg

DRUGS (4)
  1. ENBREL [Suspect]
     Indication: PSORIATIC ARTHROPATHY
     Route: 058
     Dates: start: 20070928
  2. ENBREL [Suspect]
     Indication: PSORIASIS
  3. MIRENA [Concomitant]
     Dates: start: 20071001
  4. UNSPECIFIED TOPICAL PRODUCT [Concomitant]
     Dates: start: 20070516

REACTIONS (1)
  - NASAL CONGESTION [None]
